FAERS Safety Report 5919585-9 (Version None)
Quarter: 2008Q4

REPORT INFORMATION
  Report Type: 
  Country: None (occurrence: None)
  Receive Date: 20081015
  Receipt Date: 20080320
  Transmission Date: 20090506
  Serious: No
  Sender: FDA-Public Use
  Company Number: US-BRISTOL-MYERS SQUIBB COMPANY-14121859

PATIENT
  Age: 55 Year
  Sex: Female

DRUGS (2)
  1. KENALOG-40 [Suspect]
     Dates: start: 20080311
  2. MARCAINE [Suspect]
     Dates: start: 20080311

REACTIONS (2)
  - FLUSHING [None]
  - PRURITUS [None]
